FAERS Safety Report 4692565-X (Version None)
Quarter: 2005Q2

REPORT INFORMATION
  Report Type: 
  Country: None (occurrence: None)
  Receive Date: 20050617
  Receipt Date: 20050603
  Transmission Date: 20051028
  Serious: Yes (Other)
  Sender: FDA-Public Use
  Company Number: 2005AC00872

PATIENT
  Age: 63 Year
  Sex: Female
  Weight: 53.7 kg

DRUGS (7)
  1. ATENOLOL [Suspect]
     Indication: HYPERTENSION
     Route: 048
  2. BARNIDIPINE HYDROCHLORIDE [Concomitant]
     Indication: HYPERTENSION
     Route: 048
     Dates: start: 20021008
  3. SEVOFLURANE [Concomitant]
     Indication: ANAESTHESIA
     Route: 055
     Dates: start: 20021008
  4. BUPIVACAINE HCL [Concomitant]
     Indication: ANAESTHESIA
     Route: 008
     Dates: start: 20021008
  5. DOPAMINE HCL [Concomitant]
     Indication: BLOOD PRESSURE SYSTOLIC
     Dates: start: 20021008
  6. EPHEDRINE HYDROCHLORIDE [Concomitant]
     Indication: BLOOD PRESSURE SYSTOLIC
     Dates: start: 20021008
  7. METHOXAMINE HYDROCHLORIDE [Concomitant]
     Indication: BLOOD PRESSURE SYSTOLIC
     Dates: start: 20021008

REACTIONS (8)
  - ANAEMIA [None]
  - BODY TEMPERATURE DECREASED [None]
  - DRUG INEFFECTIVE [None]
  - HEPATIC CANCER METASTATIC [None]
  - PROCEDURAL HYPOTENSION [None]
  - RECTAL CANCER [None]
  - RENAL IMPAIRMENT [None]
  - TACHYCARDIA [None]
